FAERS Safety Report 5718498-5 (Version None)
Quarter: 2008Q2

REPORT INFORMATION
  Report Type: 
  Country: None (occurrence: None)
  Receive Date: 20080425
  Receipt Date: 20080416
  Transmission Date: 20081010
  Serious: Yes (Hospitalization, Other)
  Sender: FDA-Public Use
  Company Number: US-PFIZER INC-2007052555

PATIENT
  Sex: Male
  Weight: 108.9 kg

DRUGS (1)
  1. CELEBREX [Suspect]
     Indication: KNEE OPERATION

REACTIONS (2)
  - AORTIC DISORDER [None]
  - MYOCARDIAL INFARCTION [None]
